FAERS Safety Report 5842433-2 (Version None)
Quarter: 2008Q3

REPORT INFORMATION
  Report Type: 
  Country: None (occurrence: None)
  Receive Date: 20080808
  Receipt Date: 20080729
  Transmission Date: 20090109
  Serious: Yes (Hospitalization)
  Sender: FDA-Public Use
  Company Number: 2008BI002638

PATIENT
  Age: 32 Year
  Sex: Male
  Weight: 81.6475 kg

DRUGS (1)
  1. AVONEX [Suspect]
     Indication: MULTIPLE SCLEROSIS
     Dosage: 30 UG; QW; IM
     Route: 030
     Dates: start: 20070321

REACTIONS (7)
  - ASTHENIA [None]
  - FEMUR FRACTURE [None]
  - LOSS OF CONSCIOUSNESS [None]
  - MASS [None]
  - MUSCULAR WEAKNESS [None]
  - RASH [None]
  - ROAD TRAFFIC ACCIDENT [None]
